FAERS Safety Report 17088291 (Version 1)
Quarter: 2019Q4

REPORT INFORMATION
  Report Type: Spontaneous
  Country: FR (occurrence: FR)
  Receive Date: 20191128
  Receipt Date: 20191128
  Transmission Date: 20200122
  Serious: Yes (Hospitalization, Other)
  Sender: FDA-Public Use
  Company Number: FR-SA-2019SA325426

PATIENT
  Age: 82 Year
  Sex: Male

DRUGS (6)
  1. GAVISCON [ALGINIC ACID;ALUMINIUM HYDROXIDE GEL, DRIED;MAGNESIUM TRISIL [Concomitant]
     Active Substance: ALGINIC ACID\ALUMINUM HYDROXIDE\MAGNESIUM TRISILICATE
     Dosage: UNK, UNK, UNSPECIFIED
     Route: 048
  2. BISOPROLOL FUMARATE. [Concomitant]
     Active Substance: BISOPROLOL FUMARATE
     Dosage: 5 MG, QD
     Route: 048
  3. ESOMEPRAZOLE. [Concomitant]
     Active Substance: ESOMEPRAZOLE MAGNESIUM
     Dosage: 20 MG, QD
     Route: 048
  4. LOVENOX [Suspect]
     Active Substance: ENOXAPARIN SODIUM
     Indication: HAEMOTHORAX
     Dosage: 1 DF, QD
     Route: 058
     Dates: start: 20190606, end: 20190620
  5. RIVAROXABAN [Suspect]
     Active Substance: RIVAROXABAN
     Indication: ATRIAL FIBRILLATION
     Dosage: 20 MG, QD
     Route: 048
  6. METEOXANE [PHLOROGLUCINOL;SIMETICONE] [Concomitant]
     Active Substance: DIMETHICONE\PHLOROGLUCINOL
     Dosage: UNK, UNK. UNSPECIFIED
     Route: 048

REACTIONS (2)
  - Condition aggravated [Recovered/Resolved]
  - Haemothorax [Recovered/Resolved]

NARRATIVE: CASE EVENT DATE: 20190618
